FAERS Safety Report 16721870 (Version 1)
Quarter: 2019Q3

REPORT INFORMATION
  Report Type: Spontaneous
  Country: FR (occurrence: FR)
  Receive Date: 20190820
  Receipt Date: 20190820
  Transmission Date: 20191005
  Serious: Yes (Death)
  Sender: FDA-Public Use
  Company Number: FR-MYLANLABS-2019M1078089

PATIENT
  Age: 30 Year
  Sex: Male

DRUGS (4)
  1. PANTOPRAZOLE MYLAN 20 MG, COMPRIM? GASTRO-R?SISTANT [Suspect]
     Active Substance: PANTOPRAZOLE SODIUM
     Indication: PROPHYLAXIS AGAINST GASTROINTESTINAL ULCER
     Dosage: 20 MILLIGRAM, QD
     Route: 048
     Dates: start: 20180602, end: 20180722
  2. PREDNISONE. [Suspect]
     Active Substance: PREDNISONE
     Indication: POLYARTERITIS NODOSA
     Dosage: 30 MILLIGRAM, QD
     Route: 048
     Dates: start: 20180602, end: 20180723
  3. CANDESARTAN MYLAN [Suspect]
     Active Substance: CANDESARTAN
     Indication: MALIGNANT HYPERTENSION
     Dosage: 2 DOSAGE FORM, QD
     Route: 048
     Dates: start: 20180602, end: 20180717
  4. COUMADINE [Suspect]
     Active Substance: WARFARIN SODIUM
     Indication: POLYARTERITIS NODOSA
     Dosage: 4 MILLIGRAM, QD
     Route: 048
     Dates: start: 20180602, end: 20180722

REACTIONS (1)
  - Toxic epidermal necrolysis [Fatal]

NARRATIVE: CASE EVENT DATE: 20180713
